FAERS Safety Report 26006928 (Version 2)
Quarter: 2025Q4

REPORT INFORMATION
  Report Type: Spontaneous
  Country: US (occurrence: US)
  Receive Date: 20251106
  Receipt Date: 20251113
  Transmission Date: 20260117
  Serious: Yes (Other)
  Sender: GILEAD
  Company Number: US-GILEAD-2025-0735153

PATIENT
  Age: 45 Year
  Sex: Male

DRUGS (2)
  1. EPCLUSA [Suspect]
     Active Substance: SOFOSBUVIR\VELPATASVIR
     Indication: Hepatitis C
     Dosage: UNK
     Route: 065
     Dates: start: 20251021, end: 20251102
  2. HYDROCORTISONE [Concomitant]
     Active Substance: HYDROCORTISONE
     Indication: Balanoposthitis
     Dosage: BID X 2 WEEKS

REACTIONS (8)
  - Angioedema [Recovered/Resolved]
  - Hyperhidrosis [Recovered/Resolved]
  - Dysphonia [Recovered/Resolved]
  - Productive cough [Recovered/Resolved]
  - Balanoposthitis [Recovered/Resolved]
  - Penile swelling [Recovered/Resolved]
  - Penile erythema [Recovered/Resolved]
  - Penile discharge [Recovered/Resolved]

NARRATIVE: CASE EVENT DATE: 20251021
